FAERS Safety Report 14955716 (Version 3)
Quarter: 2018Q3

REPORT INFORMATION
  Report Type: Report from Study
  Country: US (occurrence: US)
  Receive Date: 20180531
  Receipt Date: 20180827
  Transmission Date: 20181010
  Serious: Yes (Hospitalization)
  Sender: FDA-Public Use
  Company Number: US-ROCHE-2130885

PATIENT
  Age: 45 Year
  Sex: Male
  Weight: 83 kg

DRUGS (3)
  1. ENTINOSTAT [Suspect]
     Active Substance: ENTINOSTAT
     Indication: RENAL CELL CARCINOMA
     Route: 048
     Dates: start: 20180510, end: 20180517
  2. ATEZOLIZUMAB. [Suspect]
     Active Substance: ATEZOLIZUMAB
     Indication: RENAL CELL CARCINOMA
     Route: 042
     Dates: start: 20180510
  3. BEVACIZUMAB. [Suspect]
     Active Substance: BEVACIZUMAB
     Indication: RENAL CELL CARCINOMA
     Route: 042
     Dates: start: 20180510

REACTIONS (2)
  - Encephalopathy [Recovered/Resolved]
  - Encephalitis autoimmune [Recovered/Resolved]

NARRATIVE: CASE EVENT DATE: 20180523
